FAERS Safety Report 9341274 (Version 1)
Quarter: 2013Q2

REPORT INFORMATION
  Report Type: Spontaneous
  Country: US (occurrence: None)
  Receive Date: 20130610
  Receipt Date: 20130610
  Transmission Date: 20140414
  Serious: Yes (Life-Threatening, Other)
  Sender: FDA-Public Use
  Company Number: None

PATIENT
  Age: 55 Year
  Sex: Female
  Weight: 72.58 kg

DRUGS (7)
  1. CITALOPRAM [Suspect]
     Indication: DEPRESSION
     Dosage: 2X  BY MOUTH
     Route: 048
     Dates: start: 20130116, end: 20130525
  2. CITALOPRAM [Suspect]
     Indication: PANIC DISORDER
     Dosage: 2X  BY MOUTH
     Route: 048
     Dates: start: 20130116, end: 20130525
  3. CELEXA [Concomitant]
  4. DIAZEPAM [Concomitant]
  5. OMEPRAZOLE [Concomitant]
  6. FISH OIL [Concomitant]
  7. FLAX SEED OIL [Concomitant]

REACTIONS (3)
  - Depression [None]
  - Product substitution issue [None]
  - Suicidal ideation [None]
